FAERS Safety Report 14854197 (Version 2)
Quarter: 2018Q2

REPORT INFORMATION
  Report Type: Report from Study
  Country: US (occurrence: US)
  Receive Date: 20180507
  Receipt Date: 20180517
  Transmission Date: 20180711
  Serious: No
  Sender: FDA-Public Use
  Company Number: US-JAZZ-2018-US-003714

PATIENT
  Age: 60 Year
  Sex: Female

DRUGS (17)
  1. XYREM [Suspect]
     Active Substance: SODIUM OXYBATE
     Dosage: 2.25 G, BID
     Route: 048
     Dates: start: 201802, end: 201802
  2. FERROUS GLUCONATE [Concomitant]
     Active Substance: FERROUS GLUCONATE
  3. LUNESTA [Concomitant]
     Active Substance: ESZOPICLONE
  4. PRAMIPEXOLE. [Concomitant]
     Active Substance: PRAMIPEXOLE
  5. ZALEPLON. [Concomitant]
     Active Substance: ZALEPLON
  6. XYREM [Suspect]
     Active Substance: SODIUM OXYBATE
     Indication: NARCOLEPSY
     Dosage: 1.5 G, BID
     Route: 048
     Dates: start: 200510, end: 200601
  7. ADVAIR HFA [Concomitant]
     Active Substance: FLUTICASONE PROPIONATE\SALMETEROL XINAFOATE
  8. GAS-X [Concomitant]
     Active Substance: DIMETHICONE
  9. XYREM [Suspect]
     Active Substance: SODIUM OXYBATE
     Dosage: 2.25 G, BID
     Route: 048
     Dates: start: 200601, end: 200607
  10. FLAXSEED [Concomitant]
     Active Substance: FLAX SEED
  11. XYREM [Suspect]
     Active Substance: SODIUM OXYBATE
     Dosage: DOSE ADJUSTMENT
     Route: 048
     Dates: start: 201802, end: 20180225
  12. XYREM [Suspect]
     Active Substance: SODIUM OXYBATE
     Dosage: LESS THAN 3.75 GRAMS TWICE NIGHTLY
     Route: 048
     Dates: start: 20180226, end: 2018
  13. XYREM [Suspect]
     Active Substance: SODIUM OXYBATE
     Dosage: 4 G, BID
     Route: 048
     Dates: start: 2018
  14. PROAIR HFA [Concomitant]
     Active Substance: ALBUTEROL SULFATE
  15. RESTASIS [Concomitant]
     Active Substance: CYCLOSPORINE
  16. SINGULAIR [Concomitant]
     Active Substance: MONTELUKAST SODIUM
  17. IPRATROPIUM [Concomitant]
     Active Substance: IPRATROPIUM

REACTIONS (13)
  - Fatigue [Unknown]
  - Retching [Unknown]
  - Pre-existing condition improved [Unknown]
  - Thirst [Not Recovered/Not Resolved]
  - Sleep disorder [Not Recovered/Not Resolved]
  - Headache [Not Recovered/Not Resolved]
  - Nausea [Not Recovered/Not Resolved]
  - Therapeutic response unexpected [Unknown]
  - Balance disorder [Not Recovered/Not Resolved]
  - Hyperventilation [Not Recovered/Not Resolved]
  - Hypoaesthesia [Not Recovered/Not Resolved]
  - Vomiting [Unknown]
  - Nocturia [Not Recovered/Not Resolved]

NARRATIVE: CASE EVENT DATE: 201802
